FAERS Safety Report 8116888-7 (Version None)
Quarter: 2012Q1

REPORT INFORMATION
  Report Type: 
  Country: None (occurrence: None)
  Receive Date: 20120206
  Receipt Date: 20120202
  Transmission Date: 20120608
  Serious: Yes (Death, Hospitalization)
  Sender: FDA-Public Use
  Company Number: PHHO2011RU021396

PATIENT
  Sex: Male
  Weight: 79 kg

DRUGS (6)
  1. BLINDED NO TREATMENT RECEIVED [Suspect]
     Indication: CARDIAC FAILURE
     Dosage: CODE NOT BROKEN
     Route: 048
     Dates: start: 20100111, end: 20111215
  2. SPASGAN [Concomitant]
  3. PHENAZEPAM [Concomitant]
  4. KETOROLAC TROMETHAMINE [Suspect]
     Indication: PAIN
     Dosage: 10 MG X 8
     Route: 048
     Dates: start: 20111210, end: 20111216
  5. BLINDED ALISKIREN [Suspect]
     Indication: CARDIAC FAILURE
     Dosage: CODE NOT BROKEN
     Route: 048
     Dates: start: 20100111, end: 20111215
  6. ENALAPRIL MALEATE [Suspect]
     Indication: CARDIAC FAILURE
     Dosage: CODE NOT BROKEN
     Route: 048
     Dates: start: 20100111, end: 20111215

REACTIONS (34)
  - CARDIAC FAILURE [None]
  - HEPATORENAL SYNDROME [None]
  - TRICUSPID VALVE INCOMPETENCE [None]
  - INTRACARDIAC THROMBUS [None]
  - DISSEMINATED INTRAVASCULAR COAGULATION [None]
  - COMPLETED SUICIDE [None]
  - DISEASE PROGRESSION [None]
  - VOMITING [None]
  - BUNDLE BRANCH BLOCK LEFT [None]
  - CARDIAC FAILURE CONGESTIVE [None]
  - MYDRIASIS [None]
  - ARTERIOSCLEROSIS [None]
  - ISCHAEMIC CARDIOMYOPATHY [None]
  - PLEURAL EFFUSION [None]
  - MITRAL VALVE INCOMPETENCE [None]
  - ASPHYXIA [None]
  - EROSIVE OESOPHAGITIS [None]
  - BRONCHOPNEUMONIA [None]
  - CONCOMITANT DISEASE PROGRESSION [None]
  - FOREIGN BODY [None]
  - CIRCULATORY COLLAPSE [None]
  - HEPATITIS ACUTE [None]
  - CHOLESTASIS [None]
  - MULTI-ORGAN FAILURE [None]
  - NAUSEA [None]
  - GASTRITIS EROSIVE [None]
  - EJECTION FRACTION DECREASED [None]
  - HEPATOMEGALY [None]
  - PULMONARY OEDEMA [None]
  - PULMONARY EMBOLISM [None]
  - ABDOMINAL PAIN [None]
  - CONGESTIVE CARDIOMYOPATHY [None]
  - ASCITES [None]
  - NEPHRITIS [None]
